FAERS Safety Report 22850775 (Version 2)
Quarter: 2023Q4

REPORT INFORMATION
  Report Type: Spontaneous
  Country: ES (occurrence: ES)
  Receive Date: 20230822
  Receipt Date: 20231108
  Transmission Date: 20240109
  Serious: Yes (Life-Threatening, Hospitalization, Other)
  Sender: FDA-Public Use
  Company Number: US-Hikma Pharmaceuticals-US-H14001-23-00457

PATIENT
  Age: 65 Year
  Sex: Male
  Weight: 58 kg

DRUGS (96)
  1. FLUOROURACIL [Suspect]
     Active Substance: FLUOROURACIL
     Indication: Colorectal cancer
     Dosage: 688 MILLIGRAM
     Route: 042
     Dates: start: 20220902, end: 20220902
  2. FLUOROURACIL [Suspect]
     Active Substance: FLUOROURACIL
     Dosage: 4128 MILLIGRAM (SINGLE DOSE)
     Route: 065
     Dates: start: 20220902, end: 20220902
  3. FLUOROURACIL [Suspect]
     Active Substance: FLUOROURACIL
     Dosage: 4128 MILLIGRAM
     Route: 042
     Dates: start: 20220902
  4. FLUOROURACIL [Suspect]
     Active Substance: FLUOROURACIL
     Dosage: 4128 MILLIGRAM (SINGLE DOSE)
     Route: 065
     Dates: start: 20220916, end: 20220916
  5. FLUOROURACIL [Suspect]
     Active Substance: FLUOROURACIL
     Dosage: 55 MILLIGRAM
     Route: 042
     Dates: start: 20220930
  6. FLUOROURACIL [Suspect]
     Active Substance: FLUOROURACIL
     Dosage: 688 MILLIGRAM
     Route: 065
     Dates: start: 20220930, end: 20220930
  7. FLUOROURACIL [Suspect]
     Active Substance: FLUOROURACIL
     Dosage: 3302 MILLIGRAM
     Route: 042
     Dates: start: 20220930, end: 20220930
  8. FLUOROURACIL [Suspect]
     Active Substance: FLUOROURACIL
     Dosage: 550 MILLIGRAM (SINGLE DOSE)
     Route: 065
     Dates: start: 20221028, end: 20221028
  9. FLUOROURACIL [Suspect]
     Active Substance: FLUOROURACIL
     Dosage: 550 MILLIGRAM (SINGLE DOSE)
     Route: 065
     Dates: start: 20221205, end: 20221205
  10. FLUOROURACIL [Suspect]
     Active Substance: FLUOROURACIL
     Dosage: 550 MILLIGRAM (SINGLE DOSE)
     Route: 042
     Dates: start: 20230109, end: 20230109
  11. FLUOROURACIL [Suspect]
     Active Substance: FLUOROURACIL
     Dosage: 550 MILLIGRAM
     Route: 042
     Dates: start: 20230323
  12. FLUOROURACIL [Suspect]
     Active Substance: FLUOROURACIL
     Dosage: 550 MILLIGRAM
     Route: 042
     Dates: start: 20230522, end: 20230522
  13. FLUOROURACIL [Suspect]
     Active Substance: FLUOROURACIL
     Dosage: 3302 MILLIGRAM
     Route: 042
     Dates: start: 20230410
  14. FLUOROURACIL [Suspect]
     Active Substance: FLUOROURACIL
     Dosage: 3302 MILLIGRAM
     Route: 042
     Dates: start: 20230223
  15. FLUOROURACIL [Suspect]
     Active Substance: FLUOROURACIL
     Dosage: 550 MILLIGRAM
     Route: 042
     Dates: start: 20230606
  16. FLUOROURACIL [Suspect]
     Active Substance: FLUOROURACIL
     Dosage: 3302 MILLIGRAM
     Route: 042
     Dates: start: 20230424
  17. FLUOROURACIL [Suspect]
     Active Substance: FLUOROURACIL
     Dosage: 550 MILLIGRAM
     Route: 042
     Dates: start: 20230508
  18. FLUOROURACIL [Suspect]
     Active Substance: FLUOROURACIL
     Dosage: 3302 MILLIGRAM
     Route: 042
     Dates: start: 20230223, end: 20230223
  19. FLUOROURACIL [Suspect]
     Active Substance: FLUOROURACIL
     Dosage: 3302 MILLIGRAM
     Route: 042
     Dates: start: 20230508
  20. FLUOROURACIL [Suspect]
     Active Substance: FLUOROURACIL
     Dosage: 3302 MILLIGRAM
     Route: 042
     Dates: start: 20230323
  21. FLUOROURACIL [Suspect]
     Active Substance: FLUOROURACIL
     Dosage: 550 MILLIGRAM
     Route: 042
     Dates: start: 20230424
  22. FLUOROURACIL [Suspect]
     Active Substance: FLUOROURACIL
     Dosage: 550 MILLIGRAM
     Route: 042
     Dates: start: 20230410
  23. FLUOROURACIL [Suspect]
     Active Substance: FLUOROURACIL
     Dosage: 550 MILLIGRAM
     Route: 042
     Dates: start: 20230309
  24. FLUOROURACIL [Suspect]
     Active Substance: FLUOROURACIL
     Dosage: 3302 MILLIGRAM
     Route: 042
     Dates: start: 20230309
  25. FLUOROURACIL [Suspect]
     Active Substance: FLUOROURACIL
     Dosage: 3302 MILLIGRAM
     Route: 042
     Dates: start: 20230522
  26. FLUOROURACIL [Suspect]
     Active Substance: FLUOROURACIL
     Dosage: 550 MILLIGRAM
     Route: 065
     Dates: start: 20230606, end: 20230606
  27. FLUOROURACIL [Suspect]
     Active Substance: FLUOROURACIL
     Dosage: 3302 MILLIGRAM
     Route: 042
     Dates: start: 20230606
  28. FLUOROURACIL [Suspect]
     Active Substance: FLUOROURACIL
     Dosage: 550 MILLIGRAM (SINGLE DOSE)
     Route: 065
     Dates: start: 20230627, end: 20230627
  29. FLUOROURACIL [Suspect]
     Active Substance: FLUOROURACIL
     Dosage: 550 MILLIGRAM (SINGLE DOSE)
     Route: 065
     Dates: start: 20230711, end: 20230711
  30. FLUOROURACIL [Suspect]
     Active Substance: FLUOROURACIL
     Dosage: 3302 MILLIGRAM (SINGLE DOSE)
     Route: 065
     Dates: start: 20230711, end: 20230711
  31. FLUOROURACIL [Suspect]
     Active Substance: FLUOROURACIL
     Dosage: 3187 MILLIGRAM (SINGLE DOSE)
     Route: 065
     Dates: start: 20230724, end: 20230724
  32. FLUOROURACIL [Suspect]
     Active Substance: FLUOROURACIL
     Dosage: 550 MILLIGRAM (SINGLE DOSE)
     Route: 065
     Dates: start: 20230808, end: 20230808
  33. OXALIPLATIN [Suspect]
     Active Substance: OXALIPLATIN
     Indication: Colorectal cancer
     Dosage: 146 MILLIGRAM
     Route: 042
     Dates: start: 20220902, end: 20220902
  34. OXALIPLATIN [Suspect]
     Active Substance: OXALIPLATIN
     Dosage: 146 MILLIGRAM (SINGLE DOSE)
     Route: 042
     Dates: start: 20220916, end: 20220916
  35. OXALIPLATIN [Suspect]
     Active Substance: OXALIPLATIN
     Dosage: 112 MILLIGRAM
     Route: 042
     Dates: start: 20220930
  36. OXALIPLATIN [Suspect]
     Active Substance: OXALIPLATIN
     Dosage: 146 MILLIGRAM (SINGLE DOSE)
     Route: 042
     Dates: start: 20220930, end: 20220930
  37. OXALIPLATIN [Suspect]
     Active Substance: OXALIPLATIN
     Dosage: 112 MILLIGRAM (SINGLE DOSE)
     Route: 065
     Dates: start: 20221028, end: 20221028
  38. OXALIPLATIN [Suspect]
     Active Substance: OXALIPLATIN
     Dosage: 112 MILLIGRAM (SINGLE DOSE)
     Route: 065
     Dates: start: 20221121, end: 20221121
  39. OXALIPLATIN [Suspect]
     Active Substance: OXALIPLATIN
     Dosage: 112 MILLIGRAM (SINGLE DOSE)
     Route: 065
     Dates: start: 20221205, end: 20221205
  40. OXALIPLATIN [Suspect]
     Active Substance: OXALIPLATIN
     Dosage: 112 MILLIGRAM (SINGLE DOSE)
     Route: 065
     Dates: start: 20230109, end: 20230109
  41. BEVACIZUMAB [Suspect]
     Active Substance: BEVACIZUMAB
     Indication: Colorectal cancer
     Dosage: 325 MILLIGRAM
     Route: 065
     Dates: start: 20220902, end: 20220902
  42. BEVACIZUMAB [Suspect]
     Active Substance: BEVACIZUMAB
     Dosage: 325 MILLIGRAM
     Route: 065
     Dates: start: 20220916, end: 20220916
  43. BEVACIZUMAB [Suspect]
     Active Substance: BEVACIZUMAB
     Dosage: 325 MILLIGRAM
     Route: 065
     Dates: start: 20220930, end: 20220930
  44. BEVACIZUMAB [Suspect]
     Active Substance: BEVACIZUMAB
     Dosage: 325 MILLIGRAM
     Route: 065
     Dates: start: 20221028, end: 20221028
  45. BEVACIZUMAB [Suspect]
     Active Substance: BEVACIZUMAB
     Dosage: 325 MILLIGRAM
     Route: 065
     Dates: start: 20221121, end: 20221121
  46. BEVACIZUMAB [Suspect]
     Active Substance: BEVACIZUMAB
     Dosage: 325 MILLIGRAM
     Route: 065
     Dates: start: 20221205, end: 20221205
  47. BEVACIZUMAB [Suspect]
     Active Substance: BEVACIZUMAB
     Dosage: 325 MILLIGRAM
     Route: 065
     Dates: start: 20230109, end: 20230109
  48. BEVACIZUMAB [Suspect]
     Active Substance: BEVACIZUMAB
     Dosage: 325 MILLIGRAM
     Route: 042
     Dates: start: 20230309, end: 20230309
  49. BEVACIZUMAB [Suspect]
     Active Substance: BEVACIZUMAB
     Dosage: 325 MILLIGRAM
     Route: 042
     Dates: start: 20230323, end: 20230323
  50. BEVACIZUMAB [Suspect]
     Active Substance: BEVACIZUMAB
     Dosage: 325 MILLIGRAM
     Route: 042
     Dates: start: 20230410, end: 20230410
  51. BEVACIZUMAB [Suspect]
     Active Substance: BEVACIZUMAB
     Dosage: 325 MILLIGRAM
     Route: 042
     Dates: start: 20230424, end: 20230424
  52. BEVACIZUMAB [Suspect]
     Active Substance: BEVACIZUMAB
     Dosage: 325 MILLIGRAM
     Route: 042
     Dates: start: 20230508, end: 20230508
  53. BEVACIZUMAB [Suspect]
     Active Substance: BEVACIZUMAB
     Dosage: 325 MILLIGRAM
     Route: 042
     Dates: start: 20230522, end: 20230522
  54. BEVACIZUMAB [Suspect]
     Active Substance: BEVACIZUMAB
     Dosage: 325 MILLIGRAM
     Route: 065
     Dates: start: 20230627, end: 20230627
  55. BEVACIZUMAB [Suspect]
     Active Substance: BEVACIZUMAB
     Dosage: 325 MILLIGRAM
     Route: 065
     Dates: start: 20230711, end: 20230711
  56. BEVACIZUMAB [Suspect]
     Active Substance: BEVACIZUMAB
     Dosage: 325 MILLIGRAM
     Route: 065
     Dates: start: 20230808, end: 20230808
  57. LEUCOVORIN [Suspect]
     Active Substance: LEUCOVORIN\LEUCOVORIN CALCIUM
     Indication: Colorectal cancer
     Dosage: 400 MILLIGRAM (SINGLE DOSE)
     Route: 042
     Dates: start: 20220902, end: 20220902
  58. LEUCOVORIN [Suspect]
     Active Substance: LEUCOVORIN\LEUCOVORIN CALCIUM
     Dosage: 400 MILLIGRAM (SINGLE DOSE)
     Route: 065
     Dates: start: 20220916, end: 20220916
  59. LEUCOVORIN [Suspect]
     Active Substance: LEUCOVORIN\LEUCOVORIN CALCIUM
     Dosage: 400 MILLIGRAM
     Route: 042
     Dates: start: 20220930
  60. LEUCOVORIN [Suspect]
     Active Substance: LEUCOVORIN\LEUCOVORIN CALCIUM
     Dosage: 400 MILLIGRAM (SINGLE DOSE)
     Route: 065
     Dates: start: 20221121, end: 20221121
  61. LEUCOVORIN [Suspect]
     Active Substance: LEUCOVORIN\LEUCOVORIN CALCIUM
     Dosage: 400 MILLIGRAM (SINGLE DOSE)
     Route: 065
     Dates: start: 20221205, end: 20221205
  62. LEUCOVORIN [Suspect]
     Active Substance: LEUCOVORIN\LEUCOVORIN CALCIUM
     Dosage: 400 MILLIGRAM (SINGLE DOSE)
     Route: 065
     Dates: start: 20230109, end: 20230109
  63. LEUCOVORIN [Suspect]
     Active Substance: LEUCOVORIN\LEUCOVORIN CALCIUM
     Dosage: 99 MILLIGRAM
     Route: 042
     Dates: start: 20230223
  64. LEUCOVORIN [Suspect]
     Active Substance: LEUCOVORIN\LEUCOVORIN CALCIUM
     Dosage: 400 MILLIGRAM
     Route: 065
     Dates: start: 20230309, end: 20230309
  65. LEUCOVORIN [Suspect]
     Active Substance: LEUCOVORIN\LEUCOVORIN CALCIUM
     Dosage: 400 MILLIGRAM
     Route: 065
     Dates: start: 20230223, end: 20230223
  66. LEUCOVORIN [Suspect]
     Active Substance: LEUCOVORIN\LEUCOVORIN CALCIUM
     Dosage: 400 MILLIGRAM
     Route: 042
     Dates: start: 20230323, end: 20230323
  67. LEUCOVORIN [Suspect]
     Active Substance: LEUCOVORIN\LEUCOVORIN CALCIUM
     Dosage: 99 MILLIGRAM
     Route: 042
     Dates: start: 20230309
  68. LEUCOVORIN [Suspect]
     Active Substance: LEUCOVORIN\LEUCOVORIN CALCIUM
     Dosage: 99 MILLIGRAM
     Route: 042
     Dates: start: 20230522
  69. LEUCOVORIN [Suspect]
     Active Substance: LEUCOVORIN\LEUCOVORIN CALCIUM
     Dosage: 400 MILLIGRAM
     Route: 042
     Dates: start: 20230424, end: 20230424
  70. LEUCOVORIN [Suspect]
     Active Substance: LEUCOVORIN\LEUCOVORIN CALCIUM
     Dosage: 400 MILLIGRAM (SINGLE DOSE)
     Route: 065
     Dates: start: 20230522, end: 20230522
  71. LEUCOVORIN [Suspect]
     Active Substance: LEUCOVORIN\LEUCOVORIN CALCIUM
     Dosage: 400 MILLIGRAM (SINGLE DOSE)
     Route: 042
     Dates: start: 20230410, end: 20230410
  72. LEUCOVORIN [Suspect]
     Active Substance: LEUCOVORIN\LEUCOVORIN CALCIUM
     Dosage: 400 MILLIGRAM
     Route: 065
     Dates: start: 20230508, end: 20230508
  73. LEUCOVORIN [Suspect]
     Active Substance: LEUCOVORIN\LEUCOVORIN CALCIUM
     Dosage: 99 MILLIGRAM
     Route: 042
     Dates: start: 20230508
  74. LEUCOVORIN [Suspect]
     Active Substance: LEUCOVORIN\LEUCOVORIN CALCIUM
     Dosage: 99 MILLIGRAM
     Route: 042
     Dates: start: 20230606, end: 20230606
  75. LEUCOVORIN [Suspect]
     Active Substance: LEUCOVORIN\LEUCOVORIN CALCIUM
     Dosage: 400 MILLIGRAM
     Route: 065
     Dates: start: 20230627, end: 20230627
  76. LEUCOVORIN [Suspect]
     Active Substance: LEUCOVORIN\LEUCOVORIN CALCIUM
     Dosage: 400 MILLIGRAM
     Route: 065
     Dates: start: 20230711, end: 20230711
  77. LEUCOVORIN [Suspect]
     Active Substance: LEUCOVORIN\LEUCOVORIN CALCIUM
     Dosage: 99 MILLIGRAM (SINGLE DOSE)
     Route: 065
     Dates: start: 20230808, end: 20230808
  78. ZIMBERELIMAB [Suspect]
     Active Substance: ZIMBERELIMAB
     Indication: Colorectal cancer
     Dosage: 480 MILLIGRAM (SINGLE DOSE)
     Route: 065
     Dates: start: 20220123, end: 20230123
  79. ZIMBERELIMAB [Suspect]
     Active Substance: ZIMBERELIMAB
     Dosage: 400 MILLIGRAM
     Route: 042
     Dates: start: 20220902
  80. ZIMBERELIMAB [Suspect]
     Active Substance: ZIMBERELIMAB
     Dosage: 480 MILLIGRAM (SINGLE DOSE)
     Route: 065
     Dates: start: 20220902, end: 20220902
  81. ZIMBERELIMAB [Suspect]
     Active Substance: ZIMBERELIMAB
     Dosage: 400 MILLIGRAM
     Route: 042
     Dates: start: 20220930
  82. ZIMBERELIMAB [Suspect]
     Active Substance: ZIMBERELIMAB
     Dosage: 480 MILLIGRAM (SINGLE DOSE)
     Route: 065
     Dates: start: 20220930, end: 20220930
  83. ZIMBERELIMAB [Suspect]
     Active Substance: ZIMBERELIMAB
     Dosage: 480 MILLIGRAM (SINGLE DOSE)
     Route: 065
     Dates: start: 20221028, end: 20221028
  84. ZIMBERELIMAB [Suspect]
     Active Substance: ZIMBERELIMAB
     Dosage: 480 MILLIGRAM (SINGLE DOSE)
     Route: 065
     Dates: start: 20221205, end: 20221205
  85. ZIMBERELIMAB [Suspect]
     Active Substance: ZIMBERELIMAB
     Dosage: 480 MILLIGRAM (SINGLE DOSE)
     Route: 065
     Dates: start: 20230309, end: 20230309
  86. ZIMBERELIMAB [Suspect]
     Active Substance: ZIMBERELIMAB
     Dosage: 480 MILLIGRAM (SINGLE DOSE)
     Route: 042
     Dates: start: 20230410, end: 20230410
  87. ZIMBERELIMAB [Suspect]
     Active Substance: ZIMBERELIMAB
     Dosage: 480 MILLIGRAM (SINGLE DOSE)
     Route: 065
     Dates: start: 20230508, end: 20230508
  88. ZIMBERELIMAB [Suspect]
     Active Substance: ZIMBERELIMAB
     Dosage: 480 MILLIGRAM (SINGLE DOSE)
     Route: 065
     Dates: start: 20230606, end: 20230606
  89. ZIMBERELIMAB [Suspect]
     Active Substance: ZIMBERELIMAB
     Dosage: 480 MILLIGRAM (SINGLE DOSE)
     Route: 065
     Dates: start: 20230711, end: 20230711
  90. ZIMBERELIMAB [Suspect]
     Active Substance: ZIMBERELIMAB
     Dosage: 480 MILLIGRAM (SINGLE DOSE)
     Route: 065
     Dates: start: 20230808, end: 20230808
  91. POLYETHYLENE GLYCOL 3350 [Concomitant]
     Active Substance: POLYETHYLENE GLYCOL 3350
     Indication: Product used for unknown indication
     Dosage: UNK
     Route: 065
     Dates: start: 20220909
  92. CHLORTHALIDONE [Concomitant]
     Active Substance: CHLORTHALIDONE
     Indication: Product used for unknown indication
     Dosage: UNK
     Route: 065
     Dates: start: 20220909
  93. CAPTOPIRIL [Concomitant]
     Indication: Product used for unknown indication
     Dosage: UNK
     Route: 065
     Dates: start: 20230123
  94. ATENOLOL [Concomitant]
     Active Substance: ATENOLOL
     Dosage: UNK
     Route: 065
     Dates: start: 20220909
  95. ENALAPRIL [Concomitant]
     Active Substance: ENALAPRIL
     Indication: Product used for unknown indication
     Dosage: UNK
     Route: 065
     Dates: start: 20220909
  96. OMEPRAZOLE [Concomitant]
     Active Substance: OMEPRAZOLE
     Indication: Prophylaxis
     Dosage: UNK
     Route: 065
     Dates: start: 20221222

REACTIONS (7)
  - Neutropenia [Recovered/Resolved]
  - Oropharyngeal pain [Unknown]
  - Respiratory syncytial virus test positive [Unknown]
  - Asthenia [Unknown]
  - Respiratory tract infection [Unknown]
  - Pyrexia [Unknown]
  - Rash [Unknown]

NARRATIVE: CASE EVENT DATE: 20221028
